FAERS Safety Report 4960323-4 (Version None)
Quarter: 2006Q2

REPORT INFORMATION
  Report Type: 
  Country: None (occurrence: None)
  Receive Date: 20060403
  Receipt Date: 20060310
  Transmission Date: 20061013
  Serious: Yes (Other)
  Sender: FDA-Public Use
  Company Number: US-KINGPHARMUSA00001-K200600329

PATIENT
  Age: 75 Year
  Sex: Male

DRUGS (2)
  1. ALTACE [Suspect]
     Indication: BLOOD PRESSURE
     Dosage: 2.5 MG, QD
     Route: 048
     Dates: start: 20060101
  2. COUMADIN [Suspect]
     Indication: ANTICOAGULANT THERAPY
     Dosage: 4.5 MG, UNK
     Route: 048
     Dates: start: 20040601

REACTIONS (4)
  - EXTRASYSTOLES [None]
  - NASOPHARYNGITIS [None]
  - TRANSIENT ISCHAEMIC ATTACK [None]
  - VISUAL DISTURBANCE [None]
